FAERS Safety Report 7518685-X (Version None)
Quarter: 2011Q2

REPORT INFORMATION
  Report Type: 
  Country: None (occurrence: None)
  Receive Date: 20110523
  Receipt Date: 20110509
  Transmission Date: 20111010
  Serious: Yes (Life-Threatening, Hospitalization, Other)
  Sender: FDA-Public Use
  Company Number: 2011MA005697

PATIENT
  Age: 33 Year
  Sex: Male

DRUGS (2)
  1. DIAZEPAM [Suspect]
     Indication: OVERDOSE
     Dosage: ; 1X;
  2. HEXOBARBITAL (HEXOBARBITAL) [Suspect]

REACTIONS (7)
  - MULTIPLE DRUG OVERDOSE [None]
  - MIOSIS [None]
  - DRUG CLEARANCE DECREASED [None]
  - LOSS OF CONSCIOUSNESS [None]
  - HYPOTENSION [None]
  - TACHYCARDIA [None]
  - ACUTE RESPIRATORY FAILURE [None]
